FAERS Safety Report 6535695-X (Version None)
Quarter: 2010Q1

REPORT INFORMATION
  Report Type: 
  Country: None (occurrence: None)
  Receive Date: 20100106
  Receipt Date: 20091223
  Transmission Date: 20100710
  Serious: Yes (Hospitalization)
  Sender: FDA-Public Use
  Company Number: 002537

PATIENT
  Sex: Male
  Weight: 78 kg

DRUGS (8)
  1. VIMPAT [Suspect]
     Indication: EPILEPSY
     Dosage: 100 MG BID ORAL, 200 MG BID ORAL
     Route: 048
     Dates: start: 20090615
  2. VIMPAT [Suspect]
     Indication: EPILEPSY
     Dosage: 100 MG BID ORAL, 200 MG BID ORAL
     Route: 048
     Dates: start: 20091112
  3. LAMOTRIGINE [Concomitant]
  4. TOPIRAMATE [Concomitant]
  5. RAMIPRIL [Concomitant]
  6. METOPROLOL [Concomitant]
  7. L-THYROXIN [Concomitant]
  8. MIRTAZAPINE [Concomitant]

REACTIONS (5)
  - AGITATION [None]
  - ARTERIOVENOUS GRAFT SITE HAEMORRHAGE [None]
  - COMPLEX PARTIAL SEIZURES [None]
  - DELIRIUM [None]
  - STATUS EPILEPTICUS [None]
